FAERS Safety Report 11788288 (Version 1)
Quarter: 2015Q4

REPORT INFORMATION
  Report Type: Spontaneous
  Country: AU (occurrence: AU)
  Receive Date: 20151201
  Receipt Date: 20151201
  Transmission Date: 20160305
  Serious: Yes (Other)
  Sender: FDA-Public Use
  Company Number: AU-ROCHE-1669175

PATIENT
  Sex: Female

DRUGS (3)
  1. DIAZEPAM. [Suspect]
     Active Substance: DIAZEPAM
     Indication: NEURALGIA
     Route: 065
  2. VALIUM [Suspect]
     Active Substance: DIAZEPAM
     Indication: NEURALGIA
     Dosage: 2MG TABLET (DOSE 1 MG) - 1 NIGHTLY WHEN REQUIRED
     Route: 065
  3. VALIUM [Suspect]
     Active Substance: DIAZEPAM
     Dosage: 5 MG TABLET (DOSE 1 MG)
     Route: 065

REACTIONS (5)
  - Nerve compression [Recovered/Resolved]
  - Drug effect decreased [Unknown]
  - Pain [Recovered/Resolved]
  - Off label use [Unknown]
  - Mobility decreased [Recovered/Resolved]
